FAERS Safety Report 9016176 (Version 1)
Quarter: 2013Q1

REPORT INFORMATION
  Report Type: Spontaneous
  Country: US (occurrence: US)
  Receive Date: 20130116
  Receipt Date: 20130116
  Transmission Date: 20140127
  Serious: Yes (Other)
  Sender: FDA-Public Use
  Company Number: CHPA2013US000625

PATIENT
  Age: 66 Year
  Sex: Female

DRUGS (2)
  1. MYOFLEX ANALGESIC CREME [Suspect]
     Indication: ARTHRALGIA
     Dosage: UNK, BID
     Route: 061
  2. DRUG THERAPY NOS [Concomitant]
     Dosage: UNK, UNK
     Dates: start: 201212

REACTIONS (5)
  - Joint dislocation [Not Recovered/Not Resolved]
  - Fracture [Not Recovered/Not Resolved]
  - Muscle strain [Not Recovered/Not Resolved]
  - Musculoskeletal pain [Not Recovered/Not Resolved]
  - Expired drug administered [Unknown]
